FAERS Safety Report 5878024-7 (Version None)
Quarter: 2008Q3

REPORT INFORMATION
  Report Type: 
  Country: None (occurrence: None)
  Receive Date: 20080909
  Receipt Date: 20080909
  Transmission Date: 20090109
  Serious: No
  Sender: FDA-Public Use
  Company Number: None

PATIENT
  Age: 67 Year
  Sex: Male
  Weight: 83.01 kg

DRUGS (2)
  1. LITHIUM CARBONATE [Suspect]
     Indication: BIPOLAR I DISORDER
     Dosage: 300 MG OTHER PO
     Route: 048
     Dates: start: 20051205, end: 20080625
  2. LITHIUM CARBONATE [Suspect]
     Indication: DEPRESSION
     Dosage: 300 MG OTHER PO
     Route: 048
     Dates: start: 20051205, end: 20080625

REACTIONS (9)
  - ANTIPSYCHOTIC DRUG LEVEL INCREASED [None]
  - ATAXIA [None]
  - CONFUSIONAL STATE [None]
  - DEPRESSED LEVEL OF CONSCIOUSNESS [None]
  - DYSARTHRIA [None]
  - HYPERCALCAEMIA [None]
  - HYPERPARATHYROIDISM [None]
  - RENAL IMPAIRMENT [None]
  - SEDATION [None]
